FAERS Safety Report 5867735-5 (Version None)
Quarter: 2008Q3

REPORT INFORMATION
  Report Type: 
  Country: None (occurrence: None)
  Receive Date: 20080902
  Receipt Date: 20080213
  Transmission Date: 20090109
  Serious: No
  Sender: FDA-Public Use
  Company Number: US-ABBOTT-08P-163-0438555-00

PATIENT
  Sex: Female
  Weight: 153.45 kg

DRUGS (5)
  1. DEPAKOTE ER [Suspect]
     Indication: SCHIZOAFFECTIVE DISORDER
     Route: 048
     Dates: start: 20070301
  2. DEPAKOTE ER [Suspect]
     Route: 048
     Dates: start: 20070901
  3. LIPREXA [Concomitant]
     Indication: SCHIZOAFFECTIVE DISORDER
     Route: 048
  4. CLONAZEPAM [Concomitant]
     Indication: SCHIZOAFFECTIVE DISORDER
     Route: 048
  5. LOBUTIN XR [Concomitant]
     Indication: SCHIZOAFFECTIVE DISORDER
     Route: 048

REACTIONS (2)
  - OEDEMA PERIPHERAL [None]
  - WEIGHT INCREASED [None]
